FAERS Safety Report 8583491-4 (Version None)
Quarter: 2012Q3

REPORT INFORMATION
  Report Type: 
  Country: None (occurrence: None)
  Receive Date: 20120809
  Receipt Date: 20120806
  Transmission Date: 20120928
  Serious: No
  Sender: FDA-Public Use
  Company Number: US-TEVA-352469USA

PATIENT
  Sex: Female
  Weight: 55.842 kg

DRUGS (5)
  1. MULTI-VITAMIN [Concomitant]
     Route: 048
  2. ASPIRIN [Concomitant]
     Dosage: 81 MILLIGRAM DAILY;
     Route: 048
  3. ZYRTEC [Concomitant]
     Indication: HYPERSENSITIVITY
     Dosage: 5 MILLIGRAM DAILY;
     Route: 048
     Dates: start: 20100101
  4. NUVIGIL [Suspect]
     Indication: FATIGUE
     Dosage: 150 MILLIGRAM DAILY; QAM
     Route: 048
     Dates: start: 20120601
  5. LIPITOR [Concomitant]
     Indication: BLOOD CHOLESTEROL ABNORMAL
     Dosage: 40 MILLIGRAM DAILY;
     Route: 048
     Dates: start: 20080101

REACTIONS (2)
  - OFF LABEL USE [None]
  - HEADACHE [None]
